FAERS Safety Report 25396064 (Version 1)
Quarter: 2025Q2

REPORT INFORMATION
  Report Type: Spontaneous
  Country: US (occurrence: None)
  Receive Date: 20250603
  Receipt Date: 20250603
  Transmission Date: 20250716
  Serious: Yes (Disabling)
  Sender: FDA-CTU
  Company Number: None

PATIENT
  Age: 24 Year
  Sex: Female
  Weight: 56.25 kg

DRUGS (1)
  1. FLUOXETINE [Suspect]
     Active Substance: FLUOXETINE HYDROCHLORIDE
     Indication: Anxiety
     Dosage: OTHER QUANTITY : 90 CAPSULE(S);?FREQUENCY : DAILY;?
     Route: 048
     Dates: start: 20200201, end: 20220524

REACTIONS (30)
  - Exposure during pregnancy [None]
  - Anaphylactic reaction [None]
  - Maternal drugs affecting foetus [None]
  - Autism spectrum disorder [None]
  - Panic attack [None]
  - Palpitations [None]
  - Dizziness [None]
  - Diarrhoea [None]
  - Akathisia [None]
  - Insomnia [None]
  - Fatigue [None]
  - Hallucination, auditory [None]
  - Visual impairment [None]
  - Neuralgia [None]
  - Depression [None]
  - Suicidal ideation [None]
  - Bruxism [None]
  - Derealisation [None]
  - Depersonalisation/derealisation disorder [None]
  - Anxiety [None]
  - Photophobia [None]
  - Electric shock sensation [None]
  - Tremor [None]
  - Migraine [None]
  - Vision blurred [None]
  - Fluid retention [None]
  - Weight increased [None]
  - Food craving [None]
  - Emotional disorder [None]
  - Sensory disturbance [None]

NARRATIVE: CASE EVENT DATE: 20220710
